FAERS Safety Report 10735448 (Version 2)
Quarter: 2015Q1

REPORT INFORMATION
  Report Type: Report from Study
  Country: CO (occurrence: CO)
  Receive Date: 20150126
  Receipt Date: 20150212
  Transmission Date: 20150721
  Serious: Yes (Other)
  Sender: FDA-Public Use
  Company Number: CO-ROCHE-1525441

PATIENT
  Sex: Male
  Weight: 70 kg

DRUGS (9)
  1. LORATADINE. [Concomitant]
     Active Substance: LORATADINE
  2. BETAMETASONA [Concomitant]
  3. THEOPHYLLINE [Concomitant]
     Active Substance: THEOPHYLLINE ANHYDROUS
  4. SALBUTAMOL [Concomitant]
     Active Substance: ALBUTEROL
  5. IPRATROPIO BROMURO [Concomitant]
     Active Substance: IPRATROPIUM BROMIDE
  6. LOSARTAN [Concomitant]
     Active Substance: LOSARTAN
  7. DIOSMIN [Concomitant]
     Active Substance: DIOSMIN
  8. XOLAIR [Suspect]
     Active Substance: OMALIZUMAB
     Indication: ASTHMA
     Route: 058
  9. ASPIRINA [Concomitant]
     Active Substance: ASPIRIN

REACTIONS (2)
  - Asthmatic crisis [Recovered/Resolved]
  - Lung disorder [Recovered/Resolved]
